FAERS Safety Report 23264173 (Version 2)
Quarter: 2024Q1

REPORT INFORMATION
  Report Type: Spontaneous
  Country: US (occurrence: US)
  Receive Date: 20231205
  Receipt Date: 20240201
  Transmission Date: 20240410
  Serious: Yes (Other)
  Sender: FDA-Public Use
  Company Number: US-PFIZER INC-202300426620

PATIENT
  Age: 59 Year
  Sex: Male
  Weight: 77.098 kg

DRUGS (1)
  1. XELJANZ [Suspect]
     Active Substance: TOFACITINIB CITRATE
     Dosage: 10 MG
     Route: 048
     Dates: start: 20190429

REACTIONS (1)
  - Diabetes mellitus [Unknown]
